FAERS Safety Report 5804714-8 (Version None)
Quarter: 2008Q3

REPORT INFORMATION
  Report Type: 
  Country: None (occurrence: None)
  Receive Date: 20080709
  Receipt Date: 20080627
  Transmission Date: 20090109
  Serious: Yes (Hospitalization)
  Sender: FDA-Public Use
  Company Number: JP-ASTRAZENECA-2008AP04097

PATIENT
  Age: 18082 Day
  Sex: Female

DRUGS (10)
  1. OMEPRAZOLE [Suspect]
     Indication: REFLUX OESOPHAGITIS
     Route: 048
     Dates: start: 20071218, end: 20080414
  2. PARIET [Suspect]
     Indication: DYSPEPSIA
  3. LIVALO [Concomitant]
     Dates: start: 20070407, end: 20080414
  4. PRAMIEL [Concomitant]
     Route: 048
     Dates: start: 20071215, end: 20080414
  5. GASMOTIN [Concomitant]
  6. SANMEL [Concomitant]
  7. MAGLAX [Concomitant]
  8. ALLEGRA [Concomitant]
     Dates: start: 20080403, end: 20080414
  9. ALUMIGEL [Concomitant]
     Dates: start: 20071215, end: 20080414
  10. COMPOUND EPITHANATE-G [Concomitant]
     Dates: start: 20071215, end: 20080414

REACTIONS (1)
  - HEPATIC FUNCTION ABNORMAL [None]
